FAERS Safety Report 8583797-9 (Version None)
Quarter: 2012Q3

REPORT INFORMATION
  Report Type: 
  Country: None (occurrence: None)
  Receive Date: 20120810
  Receipt Date: 20120730
  Transmission Date: 20120928
  Serious: Yes (Death)
  Sender: FDA-Public Use
  Company Number: JP-009507513-1207JPN007694

PATIENT

DRUGS (2)
  1. SITAGLIPTIN PHOSPHATE [Suspect]
     Indication: TYPE 2 DIABETES MELLITUS
     Dosage: 50 MG, QD
     Route: 048
     Dates: start: 20100423, end: 20100713
  2. SITAGLIPTIN PHOSPHATE [Suspect]
     Dosage: 25 MG, QD
     Route: 048
     Dates: start: 20100714, end: 20111125

REACTIONS (1)
  - LARGE INTESTINE CARCINOMA [None]
